FAERS Safety Report 7657309-8 (Version None)
Quarter: 2011Q3

REPORT INFORMATION
  Report Type: 
  Country: None (occurrence: None)
  Receive Date: 20110804
  Receipt Date: 20110726
  Transmission Date: 20111222
  Serious: Yes (Other)
  Sender: FDA-Public Use
  Company Number: PHHY2011US59663

PATIENT
  Sex: Female
  Weight: 126.8 kg

DRUGS (1)
  1. GILENYA [Suspect]
     Indication: MULTIPLE SCLEROSIS
     Dosage: 0.5 MG, DAILY
     Route: 048
     Dates: start: 20110218

REACTIONS (4)
  - SINUSITIS [None]
  - ORAL HERPES [None]
  - VITREOUS FLOATERS [None]
  - COUGH [None]
